FAERS Safety Report 8439654-1 (Version None)
Quarter: 2012Q2

REPORT INFORMATION
  Report Type: 
  Country: None (occurrence: None)
  Receive Date: 20120615
  Receipt Date: 20120608
  Transmission Date: 20120825
  Serious: Yes (Hospitalization)
  Sender: FDA-Public Use
  Company Number: JP-B.I. PHARMACEUTICALS,INC./RIDGEFIELD-2012-BP-13187NB

PATIENT
  Age: 87 Year
  Sex: Female

DRUGS (6)
  1. ARICEPT [Concomitant]
     Route: 065
     Dates: start: 20120517
  2. MAGMITT [Concomitant]
     Dosage: 1000 MG
     Route: 065
     Dates: start: 20120517
  3. ALDACTONE [Concomitant]
     Dosage: 25 MG
     Route: 065
     Dates: start: 20120517
  4. LASIX [Concomitant]
     Dosage: 40 MG
     Route: 065
     Dates: start: 20120517
  5. PRADAXA [Suspect]
     Indication: ATRIAL FIBRILLATION
     Dosage: 220 MG
     Route: 048
     Dates: start: 20120515, end: 20120530
  6. VITAMIN B12 [Concomitant]
     Dosage: 1000 MCG
     Route: 065
     Dates: start: 20120517

REACTIONS (1)
  - PNEUMONIA [None]
